FAERS Safety Report 7549191-4 (Version None)
Quarter: 2011Q2

REPORT INFORMATION
  Report Type: 
  Country: None (occurrence: None)
  Receive Date: 20110615
  Receipt Date: 20110606
  Transmission Date: 20111010
  Serious: Yes (Hospitalization)
  Sender: FDA-Public Use
  Company Number: PHHY2011US49458

PATIENT
  Age: 56 Year
  Sex: Female
  Weight: 52 kg

DRUGS (8)
  1. NATALIZUMAB [Concomitant]
  2. CORTICOSTEROIDS [Concomitant]
  3. GLATIRAMER ACETATE [Concomitant]
  4. MYCOPHENOLATE MEFETIL [Concomitant]
  5. EXTAVIA [Suspect]
     Route: 058
  6. INTERFERON BETA-1A                 /00596808/ [Concomitant]
  7. MITOXANTRONE [Concomitant]
  8. METHYLPREDNISOLONE [Concomitant]

REACTIONS (4)
  - TIBIA FRACTURE [None]
  - FIBULA FRACTURE [None]
  - FALL [None]
  - PNEUMONIA [None]
